FAERS Safety Report 19194091 (Version 5)
Quarter: 2021Q4

REPORT INFORMATION
  Report Type: Spontaneous
  Country: US (occurrence: US)
  Receive Date: 20210429
  Receipt Date: 20211129
  Transmission Date: 20220303
  Serious: Yes (Other)
  Sender: FDA-Public Use
  Company Number: US-PFIZER INC-2021338646

PATIENT
  Age: 53 Year
  Sex: Male
  Weight: 88.45 kg

DRUGS (2)
  1. SOMAVERT [Suspect]
     Active Substance: PEGVISOMANT
     Indication: Acromegaly
     Dosage: 30 MG, ALTERNATE DAY (EVERY OTHER DAY)
     Dates: start: 201809
  2. SOMAVERT [Suspect]
     Active Substance: PEGVISOMANT
     Indication: Gigantism
     Dosage: 30 MG (30MG SQ QOD)
     Route: 058
     Dates: start: 20181010, end: 2021

REACTIONS (4)
  - Calcinosis [Unknown]
  - Device use issue [Unknown]
  - Device delivery system issue [Unknown]
  - Off label use [Unknown]

NARRATIVE: CASE EVENT DATE: 20180901
